FAERS Safety Report 5530260-5 (Version None)
Quarter: 2007Q4

REPORT INFORMATION
  Report Type: 
  Country: None (occurrence: None)
  Receive Date: 20071127
  Receipt Date: 20071127
  Transmission Date: 20080405
  Serious: Yes (Disabling)
  Sender: FDA-Public Use
  Company Number: None

PATIENT
  Age: 30 Year
  Sex: Female
  Weight: 89 kg

DRUGS (1)
  1. LEUPROLIDE ACETATE [Suspect]
     Dosage: 3.75 MG MONTHLY IM
     Route: 030
     Dates: start: 20070412, end: 20070607

REACTIONS (2)
  - BENIGN BREAST NEOPLASM [None]
  - FIBROMATOSIS [None]
